FAERS Safety Report 6557548-3 (Version None)
Quarter: 2010Q1

REPORT INFORMATION
  Report Type: 
  Country: None (occurrence: None)
  Receive Date: 20100129
  Receipt Date: 20100125
  Transmission Date: 20100710
  Serious: Yes (Other)
  Sender: FDA-Public Use
  Company Number: US-ROCHE-681349

PATIENT
  Sex: Male
  Weight: 57.3 kg

DRUGS (1)
  1. XELODA [Suspect]
     Route: 048
     Dates: start: 20090901, end: 20100101

REACTIONS (2)
  - DYSPHAGIA [None]
  - MALIGNANT NEOPLASM PROGRESSION [None]
